FAERS Safety Report 10599423 (Version 1)
Quarter: 2014Q4

REPORT INFORMATION
  Report Type: Spontaneous
  Country: US (occurrence: US)
  Receive Date: 20141121
  Receipt Date: 20141121
  Transmission Date: 20150529
  Serious: Yes (Other)
  Sender: FDA-Public Use
  Company Number: US-GLAXOSMITHKLINE-US2014GSK022748

PATIENT
  Sex: Male

DRUGS (1)
  1. AVANDIA [Suspect]
     Active Substance: ROSIGLITAZONE MALEATE
     Indication: TYPE 1 DIABETES MELLITUS
     Dosage: 4 MG, BID
     Route: 048
     Dates: start: 200001, end: 200708

REACTIONS (6)
  - Cardiac failure congestive [Unknown]
  - Arteriosclerosis [Unknown]
  - Chest pain [Unknown]
  - Myocardial ischaemia [Unknown]
  - Cardiac disorder [Unknown]
  - Cardiomyopathy [Unknown]
